FAERS Safety Report 19827579 (Version 1)
Quarter: 2021Q3

REPORT INFORMATION
  Report Type: Spontaneous
  Country: PT (occurrence: PT)
  Receive Date: 20210914
  Receipt Date: 20210914
  Transmission Date: 20211014
  Serious: Yes (Other)
  Sender: FDA-Public Use
  Company Number: PT-LUPIN PHARMACEUTICALS INC.-2021-17196

PATIENT
  Age: 17 Year
  Sex: Male

DRUGS (8)
  1. LEVETIRACETAM. [Suspect]
     Active Substance: LEVETIRACETAM
     Indication: MYOCLONIC DYSTONIA
     Dosage: 500 MILLIGRAM, QD
     Route: 065
  2. LEVETIRACETAM. [Suspect]
     Active Substance: LEVETIRACETAM
     Indication: BLEPHAROSPASM
  3. CLONAZEPAM. [Suspect]
     Active Substance: CLONAZEPAM
     Indication: BLEPHAROSPASM
  4. CLONAZEPAM. [Suspect]
     Active Substance: CLONAZEPAM
     Indication: MYOCLONIC DYSTONIA
     Dosage: 3 MILLIGRAM, QD
     Route: 065
  5. LEVODOPA [Suspect]
     Active Substance: LEVODOPA
     Indication: BLEPHAROSPASM
  6. TRIHEXYPHENIDYL [Suspect]
     Active Substance: TRIHEXYPHENIDYL
     Indication: MYOCLONIC DYSTONIA
     Dosage: 6 MILLIGRAM, QD
     Route: 065
  7. LEVODOPA [Suspect]
     Active Substance: LEVODOPA
     Indication: MYOCLONIC DYSTONIA
     Dosage: 300 MILLIGRAM, QD
     Route: 065
  8. TRIHEXYPHENIDYL [Suspect]
     Active Substance: TRIHEXYPHENIDYL
     Indication: BLEPHAROSPASM

REACTIONS (1)
  - Drug ineffective [Unknown]
